FAERS Safety Report 24615901 (Version 2)
Quarter: 2024Q4

REPORT INFORMATION
  Report Type: Spontaneous
  Country: TR (occurrence: TR)
  Receive Date: 20241113
  Receipt Date: 20241127
  Transmission Date: 20250115
  Serious: Yes (Other)
  Sender: BAUSCH AND LOMB
  Company Number: TR-BAUSCHBL-2024BNL037178

PATIENT
  Age: 52 Year
  Sex: Male

DRUGS (1)
  1. VYZULTA [Suspect]
     Active Substance: LATANOPROSTENE BUNOD
     Indication: Glaucoma
     Route: 047
     Dates: start: 2023

REACTIONS (2)
  - Myasthenia gravis [Not Recovered/Not Resolved]
  - Eyelid ptosis [Not Recovered/Not Resolved]

NARRATIVE: CASE EVENT DATE: 20230101
